FAERS Safety Report 18383215 (Version 1)
Quarter: 2020Q4

REPORT INFORMATION
  Report Type: Spontaneous
  Country: US (occurrence: US)
  Receive Date: 20201014
  Receipt Date: 20201014
  Transmission Date: 20210114
  Serious: Yes (Death, Hospitalization, Other)
  Sender: FDA-Public Use
  Company Number: US-PURDUE-USA-2020-0170370

PATIENT
  Sex: Female

DRUGS (4)
  1. OXYCODONE/ ACETAMINOPHEN TABLETS [Suspect]
     Active Substance: ACETAMINOPHEN\OXYCODONE HYDROCHLORIDE
     Indication: PRODUCT USED FOR UNKNOWN INDICATION
     Route: 048
  2. OXYCODONE HCL CR TABLETS (SIMILAR TO NDA 22-272) [Suspect]
     Active Substance: OXYCODONE HYDROCHLORIDE
     Indication: PRODUCT USED FOR UNKNOWN INDICATION
     Route: 048
  3. OXYCODONE HCL TABLETS (RHODES 91-490) [Suspect]
     Active Substance: OXYCODONE HYDROCHLORIDE
     Indication: PRODUCT USED FOR UNKNOWN INDICATION
     Route: 048
  4. OXYCODONE HYDROCHLORIDE (SIMILAR TO NDA 22-272) [Suspect]
     Active Substance: OXYCODONE HYDROCHLORIDE
     Indication: PRODUCT USED FOR UNKNOWN INDICATION
     Route: 048

REACTIONS (17)
  - Drug dependence [Unknown]
  - Drug abuse [Unknown]
  - Surgery [Unknown]
  - Emotional distress [Unknown]
  - Back pain [Unknown]
  - Headache [Unknown]
  - Death [Fatal]
  - Injury [Unknown]
  - General physical health deterioration [Unknown]
  - Hospitalisation [Unknown]
  - Exposure during pregnancy [Recovered/Resolved]
  - Pain [Unknown]
  - Mental disorder [Unknown]
  - Pain in extremity [Unknown]
  - Adverse drug reaction [Unknown]
  - Somnolence [Unknown]
  - Behaviour disorder [Unknown]

NARRATIVE: CASE EVENT DATE: 201705
